FAERS Safety Report 7868910-0 (Version None)
Quarter: 2011Q4

REPORT INFORMATION
  Report Type: 
  Country: None (occurrence: None)
  Receive Date: 20111024
  Receipt Date: 20111018
  Transmission Date: 20120403
  Serious: Yes (Other)
  Sender: FDA-Public Use
  Company Number: 2011SP038021

PATIENT
  Age: 38 Year
  Sex: Female

DRUGS (2)
  1. ESCITALOPRAM [Suspect]
     Indication: DEPRESSION
     Dosage: 20 MG;QD;PO
     Route: 048
     Dates: start: 20101101
  2. REMERON [Suspect]
     Indication: DEPRESSION
     Dosage: 15 MG;QD;PO
     Route: 048
     Dates: start: 20110708, end: 20110710

REACTIONS (11)
  - INSOMNIA [None]
  - MOOD ALTERED [None]
  - DIARRHOEA [None]
  - TREMOR [None]
  - SEROTONIN SYNDROME [None]
  - ABDOMINAL PAIN [None]
  - MYOCLONUS [None]
  - ACTIVITIES OF DAILY LIVING IMPAIRED [None]
  - DRUG INTERACTION [None]
  - DRUG LEVEL DECREASED [None]
  - IRRITABILITY [None]
